FAERS Safety Report 14124065 (Version 2)
Quarter: 2017Q4

REPORT INFORMATION
  Report Type: Spontaneous
  Country: JP (occurrence: JP)
  Receive Date: 20171025
  Receipt Date: 20171219
  Transmission Date: 20180321
  Serious: No
  Sender: FDA-Public Use
  Company Number: JP-009507513-1710JPN002463J

PATIENT
  Age: 72 Year
  Sex: Female

DRUGS (3)
  1. RULID [Concomitant]
     Active Substance: ROXITHROMYCIN
     Indication: EMPYEMA
     Dosage: UNK
     Route: 048
  2. CLARITH [Concomitant]
     Active Substance: CLARITHROMYCIN
     Indication: EMPYEMA
     Dosage: 1 DF, UNK
     Route: 048
  3. BELSOMRA [Suspect]
     Active Substance: SUVOREXANT
     Dosage: 15 MG, UNK
     Route: 048

REACTIONS (1)
  - Contraindicated product administered [Unknown]
